FAERS Safety Report 7246240-8 (Version None)
Quarter: 2011Q1

REPORT INFORMATION
  Report Type: 
  Country: None (occurrence: None)
  Receive Date: 20110126
  Receipt Date: 20110124
  Transmission Date: 20110831
  Serious: Yes (Other)
  Sender: FDA-Public Use
  Company Number: US-PFIZER INC-2011016532

PATIENT
  Sex: Male
  Weight: 59.41 kg

DRUGS (7)
  1. LISINOPRIL [Concomitant]
     Indication: HYPERTENSION
     Dosage: 5 MG, 1X/DAY
     Route: 048
  2. FIBERCON [Suspect]
     Dosage: FOUR TABLETS DAILY
     Dates: start: 20110121, end: 20110123
  3. DOXAZOSIN MESILATE [Concomitant]
     Indication: HYPERTENSION
     Dosage: 8 MG, 1X/DAY
  4. LIPITOR [Concomitant]
     Indication: BLOOD CHOLESTEROL INCREASED
     Dosage: 10 MG, 1X/DAY
  5. AVODART [Concomitant]
     Indication: PROSTATIC DISORDER
     Dosage: 0.5 MG, UNK
  6. HYDROCHLOROTHIAZIDE [Concomitant]
     Indication: HYPERTENSION
     Dosage: UNK
  7. FIBERCON [Suspect]
     Indication: BOWEL MOVEMENT IRREGULARITY
     Dosage: UNK
     Route: 048
     Dates: start: 20110118, end: 20110123

REACTIONS (2)
  - HAEMATOCHEZIA [None]
  - FAECES HARD [None]
